FAERS Safety Report 8576737-X (Version None)
Quarter: 2012Q3

REPORT INFORMATION
  Report Type: 
  Country: None (occurrence: None)
  Receive Date: 20120807
  Receipt Date: 20120730
  Transmission Date: 20120928
  Serious: Yes (Other)
  Sender: FDA-Public Use
  Company Number: US-GENZYME-CERZ-1002575

PATIENT
  Sex: Female
  Weight: 75.737 kg

DRUGS (5)
  1. CEREZYME [Suspect]
     Indication: GAUCHER'S DISEASE
     Dosage: 4400 U, Q4W
     Route: 042
     Dates: start: 20060701
  2. CARBAMAZEPINE [Concomitant]
     Indication: PRODUCT USED FOR UNKNOWN INDICATION
     Dosage: 10 MG, PRN
     Route: 042
  3. ONDANSETRON [Concomitant]
     Indication: PREMEDICATION
     Dosage: 20 MG, UNK
     Route: 065
  4. PROPRANOLOL [Concomitant]
     Indication: PRODUCT USED FOR UNKNOWN INDICATION
     Dosage: 10 MG, UNK
     Route: 065
  5. DILAUDID [Concomitant]
     Indication: PRODUCT USED FOR UNKNOWN INDICATION
     Dosage: 4 UNK, PRN
     Route: 042

REACTIONS (4)
  - VOMITING [None]
  - DEHYDRATION [None]
  - HEADACHE [None]
  - NAUSEA [None]
